FAERS Safety Report 16421259 (Version 1)
Quarter: 2019Q3

REPORT INFORMATION
  Report Type: Spontaneous
  Country: US (occurrence: US)
  Receive Date: 20190611
  Receipt Date: 20190611
  Transmission Date: 20191004
  Serious: Yes (Death)
  Sender: FDA-Public Use
  Company Number: None

PATIENT
  Sex: Female

DRUGS (8)
  1. LISINOPRIL. [Concomitant]
     Active Substance: LISINOPRIL
  2. LEVOTHYROXINE. [Concomitant]
     Active Substance: LEVOTHYROXINE
  3. ORENCIA [Suspect]
     Active Substance: ABATACEPT
     Indication: RHEUMATOID ARTHRITIS
     Dosage: ?          OTHER FREQUENCY:Q 7 DAYS;?
     Route: 058
     Dates: start: 20151229, end: 20190610
  4. ESTRADIOL. [Concomitant]
     Active Substance: ESTRADIOL
  5. RITLAN [Concomitant]
  6. KLONOPIN [Concomitant]
     Active Substance: CLONAZEPAM
  7. FOLIC ACID. [Concomitant]
     Active Substance: FOLIC ACID
  8. IRON [Concomitant]
     Active Substance: IRON

REACTIONS (1)
  - Death [None]
